FAERS Safety Report 4680105-0 (Version None)
Quarter: 2005Q2

REPORT INFORMATION
  Report Type: 
  Country: None (occurrence: None)
  Receive Date: 20050531
  Receipt Date: 20050518
  Transmission Date: 20051028
  Serious: Yes (Other)
  Sender: FDA-Public Use
  Company Number: 2005077139

PATIENT
  Age: 73 Year
  Sex: Male

DRUGS (4)
  1. VIAGRA [Suspect]
     Indication: ERECTILE DYSFUNCTION
     Dosage: 50 MG, AS NECESSARY, ORAL
     Route: 048
  2. CLARITHROMYCIN [Suspect]
     Indication: PNEUMONIA
     Dosage: 1 GRAM (500 MG, 1 IN 1 D), ORAL
     Route: 048
     Dates: start: 20050314, end: 20050321
  3. OXICONAZOLE (OXICONAZOLE) [Concomitant]
  4. BUDESONIDE [Concomitant]

REACTIONS (3)
  - ATRIAL FIBRILLATION [None]
  - DRUG INTERACTION [None]
  - PNEUMONIA [None]
